FAERS Safety Report 5721598-7 (Version None)
Quarter: 2008Q2

REPORT INFORMATION
  Report Type: 
  Country: None (occurrence: None)
  Receive Date: 20080429
  Receipt Date: 20070319
  Transmission Date: 20081010
  Serious: No
  Sender: FDA-Public Use
  Company Number: US-ASTRAZENECA-2007UW05424

PATIENT
  Age: 58 Year
  Sex: Female
  Weight: 53.5 kg

DRUGS (8)
  1. NEXIUM [Suspect]
     Indication: GASTROOESOPHAGEAL REFLUX DISEASE
     Route: 048
  2. MAGNESIUM [Concomitant]
  3. CALCIUM [Concomitant]
  4. POTASSIUM CHLORIDE [Concomitant]
  5. ZINC [Concomitant]
  6. PLANT ENZYMES [Concomitant]
  7. ANTIOXIDANTS [Concomitant]
  8. FISH OIL [Concomitant]

REACTIONS (5)
  - ANAEMIA [None]
  - ANAEMIA VITAMIN B12 DEFICIENCY [None]
  - MYALGIA [None]
  - STOMATITIS [None]
  - WHITE BLOOD CELL COUNT DECREASED [None]
